FAERS Safety Report 10042816 (Version 7)
Quarter: 2014Q2

REPORT INFORMATION
  Report Type: Spontaneous
  Country: GB (occurrence: GB)
  Receive Date: 20140327
  Receipt Date: 20140530
  Transmission Date: 20141212
  Serious: Yes (Other)
  Sender: FDA-Public Use
  Company Number: GB-PFIZER INC-2014073160

PATIENT
  Sex: Female

DRUGS (7)
  1. METFORMIN HCL [Suspect]
     Indication: DIABETES MELLITUS
     Dosage: UNK
  2. ELIQUIS [Interacting]
     Indication: HIP ARTHROPLASTY
     Dosage: 2.5 MG, 2X/DAY
     Route: 065
  3. ELIQUIS [Interacting]
     Indication: KNEE ARTHROPLASTY
  4. ELIQUIS [Interacting]
     Indication: THROMBOSIS PROPHYLAXIS
  5. IBUPROFEN [Suspect]
     Dosage: UNK
  6. GENTAMICIN SULFATE [Suspect]
     Dosage: UNK
  7. FLUCLOXACILLIN SODIUM [Suspect]
     Dosage: UNK

REACTIONS (3)
  - Renal failure [Unknown]
  - Drug interaction [Unknown]
  - Blood pressure decreased [Unknown]
